FAERS Safety Report 9798669 (Version 2)
Quarter: 2015Q3

REPORT INFORMATION
  Report Type: Spontaneous
  Country: US (occurrence: US)
  Receive Date: 20140106
  Receipt Date: 20150806
  Transmission Date: 20151125
  Serious: No
  Sender: FDA-Public Use
  Company Number: US-GILEAD-2010-0029633

PATIENT
  Age: 72 Year
  Sex: Male
  Weight: 123.38 kg

DRUGS (12)
  1. METOPROLOL [Concomitant]
     Active Substance: METOPROLOL
  2. SULAR [Concomitant]
     Active Substance: NISOLDIPINE
  3. FOLIC ACID. [Concomitant]
     Active Substance: FOLIC ACID
  4. LASIX [Concomitant]
     Active Substance: FUROSEMIDE
  5. DIGOXIN. [Concomitant]
     Active Substance: DIGOXIN
  6. ASPIRIN. [Concomitant]
     Active Substance: ASPIRIN
  7. LETAIRIS [Suspect]
     Active Substance: AMBRISENTAN
     Indication: PULMONARY ARTERIAL HYPERTENSION
     Route: 048
     Dates: start: 20100415
  8. PLAVIX [Concomitant]
     Active Substance: CLOPIDOGREL BISULFATE
  9. AVAPRO [Concomitant]
     Active Substance: IRBESARTAN
  10. COQ10 [Concomitant]
     Active Substance: UBIDECARENONE
  11. WARFARIN [Concomitant]
     Active Substance: WARFARIN
  12. HUMALOG [Concomitant]
     Active Substance: INSULIN LISPRO

REACTIONS (1)
  - Cellulitis [Unknown]
